FAERS Safety Report 18031492 (Version 1)
Quarter: 2020Q3

REPORT INFORMATION
  Report Type: Spontaneous
  Country: US (occurrence: US)
  Receive Date: 20200715
  Receipt Date: 20200715
  Transmission Date: 20201103
  Serious: Yes (Hospitalization)
  Sender: FDA-Public Use
  Company Number: None

PATIENT
  Age: 37 Year
  Sex: Male

DRUGS (26)
  1. A?HYDROCORT [Concomitant]
     Active Substance: HYDROCORTISONE SODIUM SUCCINATE
  2. MAG OXIDE [Concomitant]
     Active Substance: MAGNESIUM OXIDE
  3. MINOCYCLINE [Concomitant]
     Active Substance: MINOCYCLINE HYDROCHLORIDE
  4. PANTOPRAZOLE [Concomitant]
     Active Substance: PANTOPRAZOLE
  5. TRAMADOL HCL [Concomitant]
     Active Substance: TRAMADOL HYDROCHLORIDE
  6. LEVOFLOXACIN. [Concomitant]
     Active Substance: LEVOFLOXACIN
  7. POT CHLORIDE [Concomitant]
     Active Substance: POTASSIUM CHLORIDE
  8. DICLOFENAC [Concomitant]
     Active Substance: DICLOFENAC
  9. SMZ/TMP DS [Concomitant]
     Active Substance: SULFAMETHOXAZOLE\TRIMETHOPRIM
  10. BOSULIF [Suspect]
     Active Substance: BOSUTINIB MONOHYDRATE
     Indication: PRODUCT USED FOR UNKNOWN INDICATION
     Route: 048
     Dates: start: 20200208
  11. ACYCLOVIR. [Concomitant]
     Active Substance: ACYCLOVIR
  12. PREDNISONE. [Concomitant]
     Active Substance: PREDNISONE
  13. FAMOTIDINE. [Concomitant]
     Active Substance: FAMOTIDINE
  14. ONDANSETRON [Concomitant]
     Active Substance: ONDANSETRON
  15. TACROLIMUS. [Concomitant]
     Active Substance: TACROLIMUS
  16. TRIAMCINOLON OIN [Concomitant]
  17. VALACYCLOVIR [Concomitant]
     Active Substance: VALACYCLOVIR HYDROCHLORIDE
  18. AMLODIPINE [Concomitant]
     Active Substance: AMLODIPINE BESYLATE
  19. DEXAMETHASON [Concomitant]
     Active Substance: DEXAMETHASONE
  20. POSACONAZOLE [Concomitant]
     Active Substance: POSACONAZOLE
  21. URSODIOL. [Concomitant]
     Active Substance: URSODIOL
  22. METRONIDAZOL [Concomitant]
     Active Substance: METRONIDAZOLE
  23. MUPIROCIN. [Concomitant]
     Active Substance: MUPIROCIN
  24. DOK [Concomitant]
     Active Substance: DOCUSATE SODIUM
  25. FLUCONAZOLE. [Concomitant]
     Active Substance: FLUCONAZOLE
  26. OXYCODONE [Concomitant]
     Active Substance: OXYCODONE

REACTIONS (1)
  - Pyrexia [None]

NARRATIVE: CASE EVENT DATE: 20200629
